FAERS Safety Report 15766989 (Version 1)
Quarter: 2018Q4

REPORT INFORMATION
  Report Type: Spontaneous
  Country: FR (occurrence: FR)
  Receive Date: 20181227
  Receipt Date: 20181227
  Transmission Date: 20190205
  Serious: Yes (Other)
  Sender: FDA-Public Use
  Company Number: FR-BAYER-2018-241191

PATIENT
  Sex: Male

DRUGS (2)
  1. ASPIRIN PROTECT [Suspect]
     Active Substance: ASPIRIN
     Dosage: UNK
  2. ASPIRIN PROTECT [Suspect]
     Active Substance: ASPIRIN
     Dosage: 300 MG, QD
     Dates: start: 2017

REACTIONS (2)
  - Loss of consciousness [None]
  - Pain [None]

NARRATIVE: CASE EVENT DATE: 2018
